FAERS Safety Report 16876440 (Version 4)
Quarter: 2020Q1

REPORT INFORMATION
  Report Type: Report from Study
  Country: US (occurrence: US)
  Receive Date: 20191002
  Receipt Date: 20200204
  Transmission Date: 20200409
  Serious: Yes (Death, Hospitalization, Other)
  Sender: FDA-Public Use
  Company Number: US-ROCHE-2427767

PATIENT
  Age: 80 Year
  Sex: Female

DRUGS (3)
  1. KLONOPIN [Suspect]
     Active Substance: CLONAZEPAM
     Indication: INSOMNIA
     Route: 048
     Dates: start: 201204
  2. KLONOPIN [Suspect]
     Active Substance: CLONAZEPAM
     Route: 048
     Dates: start: 20120318, end: 201804
  3. TRAMADOL. [Concomitant]
     Active Substance: TRAMADOL
     Route: 065

REACTIONS (17)
  - Carbon dioxide increased [Fatal]
  - Palpitations [Unknown]
  - Hypotension [Unknown]
  - Oxygen saturation decreased [Unknown]
  - Coma [Unknown]
  - Skin discolouration [Unknown]
  - Seizure [Unknown]
  - Peripheral coldness [Unknown]
  - Cardiac failure [Fatal]
  - Disability [Unknown]
  - Liver disorder [Unknown]
  - Myocardial infarction [Fatal]
  - Respiratory depression [Unknown]
  - Central nervous system infection [Unknown]
  - Gait inability [Unknown]
  - Renal disorder [Unknown]
  - Brain neoplasm [Unknown]

NARRATIVE: CASE EVENT DATE: 20180423
